FAERS Safety Report 5270114-5 (Version None)
Quarter: 2007Q1

REPORT INFORMATION
  Report Type: 
  Country: None (occurrence: None)
  Receive Date: 20070320
  Receipt Date: 20070317
  Transmission Date: 20070707
  Serious: Yes (Life-Threatening, Hospitalization, Other)
  Sender: FDA-Public Use
  Company Number: HQWYE068219MAR07

PATIENT
  Age: 57 Year
  Sex: Female
  Weight: 62 kg

DRUGS (5)
  1. RAPAMUNE [Suspect]
     Indication: PROPHYLAXIS AGAINST TRANSPLANT REJECTION
     Route: 048
     Dates: start: 20060912, end: 20061123
  2. RAPAMUNE [Suspect]
     Route: 065
     Dates: start: 20061130
  3. SANDIMMUNE [Concomitant]
     Dosage: NOT PROVIDED
     Route: 065
     Dates: end: 20061111
  4. SANDIMMUNE [Concomitant]
     Dosage: NOT PROVIDED
     Route: 065
     Dates: start: 20061122
  5. PREDNISOLONE [Concomitant]
     Indication: PROPHYLAXIS AGAINST TRANSPLANT REJECTION
     Dosage: NOT PROVIDED
     Route: 065
     Dates: start: 20060913

REACTIONS (1)
  - KIDNEY TRANSPLANT REJECTION [None]
